FAERS Safety Report 9720982 (Version 3)
Quarter: 2013Q4

REPORT INFORMATION
  Report Type: Spontaneous
  Country: JP (occurrence: JP)
  Receive Date: 20131129
  Receipt Date: 20131212
  Transmission Date: 20140711
  Serious: Yes (Hospitalization)
  Sender: FDA-Public Use
  Company Number: JP-B.I. PHARMACEUTICALS,INC./RIDGEFIELD-2013-BI-36186NB

PATIENT
  Age: 77 Year
  Sex: Male
  Weight: 81 kg

DRUGS (11)
  1. PRAZAXA [Suspect]
     Indication: ATRIAL FIBRILLATION
     Dosage: 220 MG
     Route: 048
     Dates: start: 20110702, end: 20131016
  2. FLUITRAN [Suspect]
     Dosage: 1 MG
     Route: 048
     Dates: start: 20130302, end: 20131016
  3. CALBLOCK [Suspect]
     Dosage: 32 MG
     Route: 048
     Dates: start: 20101125, end: 20131001
  4. ALOSENN [Suspect]
     Dosage: 1 G
     Route: 048
     Dates: end: 20131001
  5. METHYCOBAL [Suspect]
     Dosage: 1000 MCG
     Route: 048
     Dates: start: 20111125, end: 20131001
  6. ARTIST [Suspect]
     Dosage: 1.25 MG
     Route: 048
     Dates: start: 20110317, end: 20131016
  7. OLMETEC [Suspect]
     Dosage: 40 MG
     Route: 048
     Dates: start: 20101125, end: 20131001
  8. PARIET [Suspect]
     Dosage: 20 MG
     Route: 048
     Dates: start: 20101125, end: 20131001
  9. ZYLORIC [Suspect]
     Dosage: 100 MG
     Route: 048
     Dates: start: 20101125, end: 20131001
  10. RIZE / CLOTIAZEPAM [Concomitant]
     Dosage: 10 MG
     Route: 048
     Dates: start: 20101125, end: 20131001
  11. CARDENALIN / DOXAZOSIN MESILATE [Concomitant]
     Dosage: 4 MG
     Route: 048
     Dates: start: 20101125, end: 20131101

REACTIONS (1)
  - Toxic skin eruption [Not Recovered/Not Resolved]
